FAERS Safety Report 19216120 (Version 1)
Quarter: 2021Q2

REPORT INFORMATION
  Report Type: Spontaneous
  Country: US (occurrence: US)
  Receive Date: 20210505
  Receipt Date: 20210505
  Transmission Date: 20210717
  Serious: Yes (Hospitalization)
  Sender: FDA-Public Use
  Company Number: US-ROCHE-2822814

PATIENT
  Age: 41 Year
  Sex: Female
  Weight: 54.9 kg

DRUGS (9)
  1. OCREVUS [Suspect]
     Active Substance: OCRELIZUMAB
     Indication: MULTIPLE SCLEROSIS
     Route: 065
  2. PREDNISONE. [Concomitant]
     Active Substance: PREDNISONE
     Route: 048
  3. DOXYCYCLINE. [Concomitant]
     Active Substance: DOXYCYCLINE
  4. TYSABRI [Concomitant]
     Active Substance: NATALIZUMAB
  5. KLONOPIN [Suspect]
     Active Substance: CLONAZEPAM
     Indication: PRODUCT USED FOR UNKNOWN INDICATION
     Route: 048
  6. PREDNISONE. [Concomitant]
     Active Substance: PREDNISONE
     Route: 048
  7. SOLU?MEDROL [Concomitant]
     Active Substance: METHYLPREDNISOLONE SODIUM SUCCINATE
  8. CEFEPIME [Concomitant]
     Active Substance: CEFEPIME HYDROCHLORIDE
  9. PANTOPRAZOLE [Concomitant]
     Active Substance: PANTOPRAZOLE
     Route: 048

REACTIONS (9)
  - Pyrexia [Unknown]
  - Dizziness [Unknown]
  - Sepsis [Unknown]
  - Nephrolithiasis [Unknown]
  - Pneumonia [Unknown]
  - Dyspnoea [Unknown]
  - Transaminases increased [Unknown]
  - Oropharyngeal pain [Unknown]
  - Hepatic enzyme abnormal [Unknown]

NARRATIVE: CASE EVENT DATE: 20210126
